FAERS Safety Report 12864717 (Version 2)
Quarter: 2016Q4

REPORT INFORMATION
  Report Type: Spontaneous
  Country: AR (occurrence: AR)
  Receive Date: 20161020
  Receipt Date: 20161102
  Transmission Date: 20170207
  Serious: Yes (Other)
  Sender: FDA-Public Use
  Company Number: PHHY2016AR142624

PATIENT
  Age: 70 Year
  Sex: Male

DRUGS (2)
  1. ONBREZ BREEZHALER [Suspect]
     Active Substance: INDACATEROL
     Indication: CHRONIC OBSTRUCTIVE PULMONARY DISEASE
     Dosage: 1 DF, QD
     Route: 065
     Dates: start: 2012
  2. TIOTROPIUM BROMIDE [Concomitant]
     Active Substance: TIOTROPIUM BROMIDE
     Indication: PRODUCT USED FOR UNKNOWN INDICATION
     Route: 065

REACTIONS (8)
  - Feeling abnormal [Unknown]
  - Headache [Not Recovered/Not Resolved]
  - Malaise [Not Recovered/Not Resolved]
  - Productive cough [Unknown]
  - Choking [Not Recovered/Not Resolved]
  - Panic disorder [Unknown]
  - Oxygen saturation decreased [Not Recovered/Not Resolved]
  - Depression [Not Recovered/Not Resolved]
